FAERS Safety Report 11391975 (Version 2)
Quarter: 2015Q4

REPORT INFORMATION
  Report Type: Spontaneous
  Country: US (occurrence: US)
  Receive Date: 20150818
  Receipt Date: 20151030
  Transmission Date: 20160304
  Serious: Yes (Other)
  Sender: FDA-Public Use
  Company Number: US-PFIZER INC-2015270745

PATIENT
  Age: 71 Year
  Sex: Female
  Weight: 74 kg

DRUGS (4)
  1. LIPITOR [Suspect]
     Active Substance: ATORVASTATIN CALCIUM
     Dosage: 10 MG, DAILY (PER DAY)
     Route: 048
     Dates: start: 201004, end: 201007
  2. LIPITOR [Suspect]
     Active Substance: ATORVASTATIN CALCIUM
     Dosage: 40 MG, DAILY (PER DAY)
     Route: 048
     Dates: start: 201111, end: 201205
  3. LIPITOR [Suspect]
     Active Substance: ATORVASTATIN CALCIUM
     Indication: BLOOD CHOLESTEROL INCREASED
     Dosage: 10 MG, DAILY (PER DAY)
     Route: 048
     Dates: start: 200605, end: 201003
  4. LIPITOR [Suspect]
     Active Substance: ATORVASTATIN CALCIUM
     Dosage: 20 MG, DAILY (PER DAY)
     Route: 048
     Dates: start: 201010, end: 201111

REACTIONS (4)
  - Type 2 diabetes mellitus [Not Recovered/Not Resolved]
  - Myocardial infarction [Not Recovered/Not Resolved]
  - Cataract [Not Recovered/Not Resolved]
  - Glucose tolerance impaired [Not Recovered/Not Resolved]

NARRATIVE: CASE EVENT DATE: 200707
